FAERS Safety Report 6424983-3 (Version None)
Quarter: 2009Q4

REPORT INFORMATION
  Report Type: 
  Country: None (occurrence: None)
  Receive Date: 20091103
  Receipt Date: 20091103
  Transmission Date: 20100525
  Serious: Yes (Hospitalization)
  Sender: FDA-Public Use
  Company Number: None

PATIENT
  Age: 41 Year
  Sex: Male

DRUGS (2)
  1. ARIPIPRAZOLE [Suspect]
     Indication: BIPOLAR DISORDER
     Dosage: 20 MG HS PO
     Route: 048
     Dates: start: 20080613, end: 20090723
  2. ARIPIPRAZOLE [Suspect]
     Indication: MANIA
     Dosage: 20 MG HS PO
     Route: 048
     Dates: start: 20080613, end: 20090723

REACTIONS (4)
  - GRAND MAL CONVULSION [None]
  - MALAISE [None]
  - TONGUE BITING [None]
  - UNRESPONSIVE TO STIMULI [None]
